FAERS Safety Report 5717756-8 (Version None)
Quarter: 2008Q2

REPORT INFORMATION
  Report Type: 
  Country: None (occurrence: None)
  Receive Date: 20080425
  Receipt Date: 20080417
  Transmission Date: 20081010
  Serious: Yes (Hospitalization)
  Sender: FDA-Public Use
  Company Number: US-GENENTECH-246262

PATIENT
  Sex: Female

DRUGS (17)
  1. BLINDED RITUXIMAB [Suspect]
     Indication: ANTI-NEUTROPHIL CYTOPLASMIC ANTIBODY POSITIVE VASCULITIS
     Dosage: 714 MG, SINGLE
     Route: 042
     Dates: start: 20041230, end: 20041230
  2. BLINDED RITUXIMAB [Suspect]
     Dosage: 716 MG, SINGLE
     Route: 042
     Dates: start: 20050105, end: 20050105
  3. BLINDED RITUXIMAB [Suspect]
     Dosage: 717.6 MG, SINGLE
     Route: 042
     Dates: start: 20050111, end: 20050111
  4. BLINDED RITUXIMAB [Suspect]
     Dosage: 724 MG, SINGLE
     Route: 042
     Dates: start: 20050118, end: 20050118
  5. CYCLOPHOSPHAMIDE [Suspect]
     Indication: ANTI-NEUTROPHIL CYTOPLASMIC ANTIBODY POSITIVE VASCULITIS
     Dosage: 125 MG, QD
     Route: 048
     Dates: start: 20041230, end: 20050412
  6. AZATHIOPRINE [Suspect]
     Indication: ANTI-NEUTROPHIL CYTOPLASMIC ANTIBODY POSITIVE VASCULITIS
     Dosage: 175 MG, QD
     Route: 048
     Dates: start: 20050412, end: 20060620
  7. RITUXAN [Suspect]
     Indication: ANTI-NEUTROPHIL CYTOPLASMIC ANTIBODY POSITIVE VASCULITIS
     Dosage: 716 MG, 1/WEEK
     Route: 042
     Dates: start: 20070504, end: 20070524
  8. BACTRIM [Concomitant]
     Indication: DRUG USE FOR UNKNOWN INDICATION
     Dates: start: 20041222
  9. CENTRUM [Concomitant]
     Indication: DRUG USE FOR UNKNOWN INDICATION
     Dates: start: 19840101
  10. XALATAN [Concomitant]
     Indication: DRUG USE FOR UNKNOWN INDICATION
     Dates: start: 19940101
  11. COLACE [Concomitant]
     Indication: DRUG USE FOR UNKNOWN INDICATION
     Dates: start: 20041217
  12. FOSAMAX [Concomitant]
     Indication: DRUG USE FOR UNKNOWN INDICATION
     Dates: start: 20050102
  13. TUMS [Concomitant]
     Indication: DRUG USE FOR UNKNOWN INDICATION
     Dates: start: 20050119
  14. TYLENOL [Concomitant]
     Indication: DRUG USE FOR UNKNOWN INDICATION
     Dates: start: 20050406
  15. LORAZEPAM [Concomitant]
     Indication: DRUG USE FOR UNKNOWN INDICATION
     Dosage: UNK, UNK
     Dates: start: 20050817
  16. TYLOX [Concomitant]
     Indication: DRUG USE FOR UNKNOWN INDICATION
     Dates: start: 20070619
  17. PREDNISONE [Concomitant]
     Indication: GLOMERULONEPHRITIS
     Dates: start: 20070501

REACTIONS (3)
  - HYPERGLYCAEMIA [None]
  - NOCTURIA [None]
  - POLYURIA [None]
